FAERS Safety Report 7308166-0 (Version None)
Quarter: 2011Q1

REPORT INFORMATION
  Report Type: 
  Country: None (occurrence: None)
  Receive Date: 20110223
  Receipt Date: 20110217
  Transmission Date: 20110831
  Serious: Yes (Hospitalization, Other)
  Sender: FDA-Public Use
  Company Number: US-ABBOTT-11P-163-0706355-00

PATIENT
  Sex: Female
  Weight: 68.554 kg

DRUGS (4)
  1. CALCIUM [Concomitant]
     Indication: PRODUCT USED FOR UNKNOWN INDICATION
  2. ANTIBIOTICS [Concomitant]
     Indication: ANTIBIOTIC PROPHYLAXIS
  3. HUMIRA [Suspect]
     Indication: CROHN'S DISEASE
     Route: 058
  4. VITAMIN D [Concomitant]
     Indication: PRODUCT USED FOR UNKNOWN INDICATION

REACTIONS (5)
  - VAGINITIS BACTERIAL [None]
  - HEADACHE [None]
  - INJECTION SITE PAIN [None]
  - DYSMENORRHOEA [None]
  - ENDOMETRIOSIS [None]
